FAERS Safety Report 9714079 (Version 2)
Quarter: 2013Q4

REPORT INFORMATION
  Report Type: Spontaneous
  Country: US (occurrence: US)
  Receive Date: 20131126
  Receipt Date: 20131219
  Transmission Date: 20140711
  Serious: No
  Sender: FDA-Public Use
  Company Number: US-PFIZER INC-2013334611

PATIENT
  Age: 41 Year
  Sex: Female

DRUGS (15)
  1. XELJANZ [Suspect]
     Indication: RHEUMATOID ARTHRITIS
     Dosage: 5 MG, 2X/DAY
     Route: 048
     Dates: start: 201306, end: 2013
  2. CALCIUM/MAGNESIUM/ZINC [Concomitant]
     Dosage: UNK
  3. LEFLUNOMIDE [Concomitant]
     Dosage: UNK
  4. METHOTREXATE [Concomitant]
     Dosage: UNK
  5. CYMBALTA [Concomitant]
     Dosage: UNK
  6. FOLIC ACID [Concomitant]
     Dosage: UNK
  7. TRAZODONE HYDROCHLORIDE [Concomitant]
     Dosage: UNK
  8. SULINDAC [Concomitant]
     Dosage: UNK
  9. VITAMIN D [Concomitant]
     Dosage: UNK
  10. POTASSIUM GLUCONATE [Concomitant]
     Dosage: UNK
  11. ACIDOPHILUS [Concomitant]
     Dosage: UNK
  12. VITAMIN B6 [Concomitant]
     Dosage: UNK
  13. TURMERIC CURCUMIN [Concomitant]
     Dosage: UNK
  14. HYDROCHLOROTHIAZIDE [Concomitant]
     Dosage: UNK
  15. MONTELUKAST SODIUM [Concomitant]
     Dosage: UNK

REACTIONS (1)
  - Hepatic enzyme increased [Recovered/Resolved]
